FAERS Safety Report 4440537-2 (Version None)
Quarter: 2004Q3

REPORT INFORMATION
  Report Type: 
  Country: None (occurrence: None)
  Receive Date: 20040830
  Receipt Date: 20040813
  Transmission Date: 20050211
  Serious: Yes (Other)
  Sender: FDA-Public Use
  Company Number: 601483

PATIENT
  Sex: Male

DRUGS (5)
  1. HEMOFIL [Suspect]
     Indication: FACTOR VIII DEFICIENCY
     Dates: start: 19820101
  2. KRYOBULIN A (HUMAN COAGULATION FACTOR VIII (A)) [Suspect]
     Indication: FACTOR VIII DEFICIENCY
     Dates: start: 19820101
  3. KOATE (FACTOR VIII (ANTIHAEMOPHILIC FACTOR)) [Suspect]
     Indication: FACTOR VIII DEFICIENCY
     Dates: start: 19980101
  4. KRIOPRECIPITAT (FACTOR VIII (ANTIHAEMOPHILIC FACTOR)) [Suspect]
     Indication: FACTOR VIII DEFICIENCY
     Dates: start: 19780101, end: 19800101
  5. BLOOD COAGULATION FACTORS (BLOOD COAGULATION FACTORS) [Suspect]
     Dates: start: 19800101

REACTIONS (2)
  - HEPATITIS B VIRUS [None]
  - HEPATITIS C VIRUS [None]
